FAERS Safety Report 9486010 (Version 2)
Quarter: 2013Q3

REPORT INFORMATION
  Report Type: Spontaneous
  Country: US (occurrence: None)
  Receive Date: 20130823
  Receipt Date: 20130904
  Transmission Date: 20140515
  Serious: Yes (Hospitalization, Other)
  Sender: FDA-Public Use
  Company Number: ACO_30969_2012

PATIENT
  Age: 67 Year
  Sex: Female
  Weight: 113.4 kg

DRUGS (15)
  1. AMPYRA (DALFAMPRIDINE) TABLET, 10 MG [Suspect]
     Indication: GAIT DISTURBANCE
     Route: 048
     Dates: start: 2010, end: 201206
  2. BETASERON /01229701/  (ALBUMIN HUMAN, GLUCOSE, INTERFERON BETA) [Concomitant]
  3. ACTONEL (RISEDRONATE SODIUM) [Concomitant]
  4. ENALAPRIL [Concomitant]
  5. HYDROCHLOROTHIAZIDE (HYDROCHLOROTHIAZIDE) [Concomitant]
  6. NEXIUM I.V. [Concomitant]
  7. OXYBUTYNIN (OXYBUTYNIN) [Concomitant]
  8. LYRICA (PREGABALIN) [Concomitant]
  9. AZATHIOPRINE (AZATHIOPRINE) [Concomitant]
  10. PRAMIPEXOLE (PRAMIPEXOLE) [Concomitant]
  11. ASPIRIN (ACETYLSALICYLIC ACID) [Concomitant]
  12. VITAMIN D /00107901/ (ERGOCALCIFEROL) [Concomitant]
  13. MYRBETRIQ (MIRABEGRON) [Concomitant]
  14. VITAMIN B12 (CYANOCOBALAMIN) [Concomitant]
  15. SOLUMEDROL (METHYLPREDNISOLONE SODIUM SUCCINATE) [Concomitant]

REACTIONS (5)
  - Thyroid cancer [None]
  - Gait disturbance [None]
  - Asthenia [None]
  - Fall [None]
  - Contusion [None]
